FAERS Safety Report 10788305 (Version 1)
Quarter: 2015Q1

REPORT INFORMATION
  Report Type: Spontaneous
  Country: US (occurrence: None)
  Receive Date: 20150211
  Receipt Date: 20150211
  Transmission Date: 20150721
  Serious: Yes (Hospitalization)
  Sender: FDA-Public Use
  Company Number: None

PATIENT
  Age: 90 Year
  Sex: Female
  Weight: 114 kg

DRUGS (15)
  1. EXTENDED-RELEASE DILTIAZEM [Concomitant]
  2. FOLIC ACID. [Concomitant]
     Active Substance: FOLIC ACID
  3. ALLOPURINOL. [Concomitant]
     Active Substance: ALLOPURINOL
  4. PROTONIX [Concomitant]
     Active Substance: PANTOPRAZOLE SODIUM
  5. AUGMENTIN [Suspect]
     Active Substance: AMOXICILLIN\CLAVULANATE POTASSIUM
     Indication: WOUND
     Dosage: 1 BID ORAL
     Route: 048
     Dates: start: 20141105, end: 20141106
  6. LOVASTATIN. [Concomitant]
     Active Substance: LOVASTATIN
  7. COUMADIN [Concomitant]
     Active Substance: WARFARIN SODIUM
  8. SYNTHROID [Concomitant]
     Active Substance: LEVOTHYROXINE SODIUM
  9. AUGMENTIN [Suspect]
     Active Substance: AMOXICILLIN\CLAVULANATE POTASSIUM
     Indication: IMPAIRED HEALING
     Dosage: 1 BID ORAL
     Route: 048
     Dates: start: 20141105, end: 20141106
  10. HYDREA [Concomitant]
     Active Substance: HYDROXYUREA
  11. SINGULAIR [Concomitant]
     Active Substance: MONTELUKAST SODIUM
  12. AUGMENTIN [Concomitant]
     Active Substance: AMOXICILLIN\CLAVULANATE POTASSIUM
  13. COLACE [Concomitant]
     Active Substance: DOCUSATE SODIUM
  14. NORCO [Concomitant]
     Active Substance: ACETAMINOPHEN\HYDROCODONE BITARTRATE
  15. ASPIRIN. [Concomitant]
     Active Substance: ASPIRIN

REACTIONS (1)
  - Dyskinesia [None]

NARRATIVE: CASE EVENT DATE: 20141106
